FAERS Safety Report 8795032 (Version 1)
Quarter: 2012Q4

REPORT INFORMATION
  Report Type: Report from Study
  Country: FR (occurrence: FR)
  Receive Date: 20120917
  Receipt Date: 20120917
  Transmission Date: 20130627
  Serious: Yes (Hospitalization)
  Sender: FDA-Public Use
  Company Number: FR-ROCHE-1121430

PATIENT
  Age: 63 Year
  Sex: Male
  Weight: 60 kg

DRUGS (27)
  1. ROACTEMRA [Suspect]
     Indication: RHEUMATOID ARTHRITIS
     Route: 042
     Dates: start: 20100920
  2. ROACTEMRA [Suspect]
     Route: 042
     Dates: start: 20101018
  3. ROACTEMRA [Suspect]
     Route: 042
     Dates: start: 20101115
  4. ROACTEMRA [Suspect]
     Route: 042
     Dates: start: 20101213
  5. ROACTEMRA [Suspect]
     Route: 042
     Dates: start: 20110405
  6. ROACTEMRA [Suspect]
     Route: 042
     Dates: start: 20110504
  7. ROACTEMRA [Suspect]
     Route: 042
     Dates: start: 20110601
  8. ROACTEMRA [Suspect]
     Route: 042
     Dates: start: 20110629
  9. ROACTEMRA [Suspect]
     Route: 042
     Dates: start: 20110728
  10. ROACTEMRA [Suspect]
     Route: 042
     Dates: start: 20110825
  11. ROACTEMRA [Suspect]
     Route: 042
     Dates: start: 20110922
  12. ROACTEMRA [Suspect]
     Route: 042
     Dates: start: 20111019
  13. ROACTEMRA [Suspect]
     Route: 042
     Dates: start: 20111117
  14. ROACTEMRA [Suspect]
     Route: 042
     Dates: start: 20111215
  15. ROACTEMRA [Suspect]
     Route: 042
     Dates: start: 20120112
  16. ROACTEMRA [Suspect]
     Route: 042
     Dates: start: 20120209
  17. ROACTEMRA [Suspect]
     Route: 042
     Dates: start: 20120308
  18. PREDNISOLONE [Suspect]
     Indication: RHEUMATOID ARTHRITIS
     Route: 048
     Dates: start: 20100920
  19. PREDNISOLONE [Suspect]
     Dosage: dose decreased
     Route: 048
     Dates: start: 20110307
  20. PREDNISOLONE [Suspect]
     Dosage: dose decreased
     Route: 048
     Dates: start: 20110914
  21. PREDNISOLONE [Suspect]
     Dosage: dose decreased
     Route: 048
     Dates: start: 20110922
  22. ATENOLOL [Concomitant]
     Route: 048
  23. RAMIPRIL [Concomitant]
     Route: 048
  24. KARDEGIC [Concomitant]
     Route: 048
  25. PRAVASTATINE [Concomitant]
     Route: 048
  26. OMEPRAZOLE [Concomitant]
     Route: 048
  27. CONTRAMAL [Concomitant]
     Route: 048

REACTIONS (3)
  - Bronchial disorder [Recovered/Resolved]
  - Osteoporosis [Not Recovered/Not Resolved]
  - Muscle spasticity [Recovered/Resolved]
